FAERS Safety Report 24890343 (Version 1)
Quarter: 2025Q1

REPORT INFORMATION
  Report Type: Spontaneous
  Country: PT (occurrence: PT)
  Receive Date: 20250127
  Receipt Date: 20250127
  Transmission Date: 20250409
  Serious: Yes (Hospitalization)
  Sender: ALEXION PHARMACEUTICALS
  Company Number: PT-SANOFI-02341503

PATIENT
  Age: 3 Month

DRUGS (2)
  1. BEYFORTUS [Suspect]
     Active Substance: NIRSEVIMAB-ALIP
  2. CHOLECALCIFEROL [Concomitant]
     Active Substance: CHOLECALCIFEROL
     Indication: Supplementation therapy
     Dosage: 0.5 ML, QD

REACTIONS (1)
  - Respiratory syncytial virus infection [Recovered/Resolved]
